FAERS Safety Report 7920082-X (Version None)
Quarter: 2011Q4

REPORT INFORMATION
  Report Type: 
  Country: None (occurrence: None)
  Receive Date: 20111117
  Receipt Date: 20111107
  Transmission Date: 20120403
  Serious: Yes (Other)
  Sender: FDA-Public Use
  Company Number: US-ROCHE-1013000

PATIENT
  Sex: Female

DRUGS (2)
  1. HERCEPTIN [Suspect]
     Indication: NON-SMALL CELL LUNG CANCER
     Dosage: OVER 90 MINUTES  DAY 1, WEEK 1
     Route: 042
     Dates: start: 20000908
  2. HERCEPTIN [Suspect]
     Dosage: OVER 30  MINUTES  ON DAY 1, WEEKS 2,3, AND 4, LAST DOSE PRIOR TO SAE 14/MARCH/2002
     Route: 042

REACTIONS (1)
  - HYPERGLYCAEMIA [None]
